FAERS Safety Report 10615232 (Version 1)
Quarter: 2014Q4

REPORT INFORMATION
  Report Type: Spontaneous
  Country: US (occurrence: None)
  Receive Date: 20141125
  Receipt Date: 20141125
  Transmission Date: 20150529
  Serious: Yes (Disabling)
  Sender: FDA-Public Use
  Company Number: None

PATIENT
  Age: 43 Year
  Sex: Male
  Weight: 75 kg

DRUGS (1)
  1. RISPERDAL CONSTA [Suspect]
     Active Substance: RISPERIDONE
     Dosage: 75ML, FORTNIGHTLY, INTO THE MUSCLE
     Route: 030

REACTIONS (10)
  - Thinking abnormal [None]
  - Pain [None]
  - Obesity [None]
  - Mental impairment [None]
  - Amnesia [None]
  - Toxicity to various agents [None]
  - Musculoskeletal stiffness [None]
  - Feeling abnormal [None]
  - Arthralgia [None]
  - Drooling [None]

NARRATIVE: CASE EVENT DATE: 20130205
